FAERS Safety Report 7383406-0 (Version None)
Quarter: 2011Q1

REPORT INFORMATION
  Report Type: 
  Country: None (occurrence: None)
  Receive Date: 20110330
  Receipt Date: 20110316
  Transmission Date: 20110831
  Serious: Yes (Hospitalization, Other)
  Sender: FDA-Public Use
  Company Number: US-ELI_LILLY_AND_COMPANY-US201103005382

PATIENT
  Sex: Female

DRUGS (5)
  1. DILTIAZEM [Concomitant]
     Dosage: 120 MG, QD
  2. ADVAIR DISKUS 100/50 [Concomitant]
  3. SINGULAIR [Concomitant]
  4. FORTEO [Suspect]
     Indication: OSTEOPOROSIS
     Dosage: 20 UG, QD
     Dates: start: 20100901
  5. ALBUTEROL [Concomitant]

REACTIONS (7)
  - SCOLIOSIS [None]
  - CHEST DISCOMFORT [None]
  - DELAYED RECOVERY FROM ANAESTHESIA [None]
  - INJECTION SITE PAIN [None]
  - DYSPNOEA [None]
  - CARDIAC VALVE DISEASE [None]
  - HYPOAESTHESIA [None]
